FAERS Safety Report 4584322-X (Version None)
Quarter: 2005Q1

REPORT INFORMATION
  Report Type: 
  Country: None (occurrence: None)
  Receive Date: 20050216
  Receipt Date: 20050207
  Transmission Date: 20050727
  Serious: Yes (Hospitalization)
  Sender: FDA-Public Use
  Company Number: IE-NOVOPROD-242148

PATIENT
  Age: 70 Year
  Sex: Female

DRUGS (3)
  1. VAGIFEM [Suspect]
     Indication: GENITAL DISCHARGE
     Dosage: 1 DOSE WEEKLY
  2. ZESTRIL [Concomitant]
  3. NATRILIX - SLOW RELEASE [Concomitant]

REACTIONS (1)
  - BREAST CANCER FEMALE [None]
